FAERS Safety Report 10736093 (Version 1)
Quarter: 2015Q1

REPORT INFORMATION
  Report Type: Spontaneous
  Country: GB (occurrence: None)
  Receive Date: 20150121
  Receipt Date: 20150121
  Transmission Date: 20150721
  Serious: Yes (Hospitalization)
  Sender: FDA-Public Use
  Company Number: COR_00222_2015

PATIENT
  Age: 24 Month
  Sex: Male

DRUGS (11)
  1. 13-CIS-RETINOIC ACID [Concomitant]
     Active Substance: ISOTRETINOIN
  2. BUSULPHAN [Concomitant]
     Active Substance: BUSULFAN
  3. MELPHALAN [Concomitant]
     Active Substance: MELPHALAN
  4. HYDROCORTISONE. [Concomitant]
     Active Substance: HYDROCORTISONE
  5. FLUDROCORTISONE [Concomitant]
     Active Substance: FLUDROCORTISONE
  6. ETOPOSIDE (ETOPOSIDE) [Suspect]
     Active Substance: ETOPOSIDE
     Indication: NEUROBLASTOMA
     Dosage: (DF)?
  7. VINCRISTINE (VINCRISTINE) [Suspect]
     Active Substance: VINCRISTINE
     Indication: NEUROBLASTOMA
     Dosage: (DF)?
  8. CARBOPLATIN (CARBOPLATIN) [Suspect]
     Active Substance: CARBOPLATIN
     Indication: NEUROBLASTOMA
     Dosage: (DF)?
  9. CISPLATIN (CISPLATIN) [Suspect]
     Active Substance: CISPLATIN
     Indication: NEUROBLASTOMA
     Dosage: (DF)?
  10. RADIOTHERAPHY [Concomitant]
     Active Substance: RADIATION THERAPY
  11. CYCLOPHOSPHAMIDE (CYCLOPHOSPHAMIDE) [Suspect]
     Active Substance: CYCLOPHOSPHAMIDE
     Indication: NEUROBLASTOMA
     Dosage: (DF)?

REACTIONS (4)
  - Renal tubular disorder [None]
  - Hyponatraemia [None]
  - Hyperkalaemia [None]
  - Febrile neutropenia [None]
